FAERS Safety Report 24182722 (Version 1)
Quarter: 2024Q3

REPORT INFORMATION
  Report Type: Report from Study
  Country: US (occurrence: None)
  Receive Date: 20240807
  Receipt Date: 20240807
  Transmission Date: 20241016
  Serious: Yes (Hospitalization)
  Sender: ASTRAZENECA
  Company Number: 2023A087348

PATIENT
  Sex: Male
  Weight: 65.8 kg

DRUGS (1)
  1. LYNPARZA [Suspect]
     Active Substance: OLAPARIB
     Indication: Pancreatic carcinoma
     Route: 048
     Dates: start: 20230403

REACTIONS (6)
  - Fall [Recovering/Resolving]
  - Disorientation [Unknown]
  - Nausea [Unknown]
  - Vomiting [Unknown]
  - Decreased activity [Unknown]
  - Product dose omission issue [Unknown]
